FAERS Safety Report 4618306-X (Version None)
Quarter: 2005Q2

REPORT INFORMATION
  Report Type: 
  Country: None (occurrence: None)
  Receive Date: 20050310
  Receipt Date: 20040713
  Transmission Date: 20051028
  Serious: Yes (Hospitalization, Other)
  Sender: FDA-Public Use
  Company Number: 1-11628714

PATIENT
  Sex: Female
  Weight: 60.8 kg

DRUGS (1)
  1. DYNACIN TABLETS 100 MG [Suspect]
     Indication: ACNE
     Dosage: 100 MG PO QD
     Route: 048
     Dates: start: 20040708, end: 20040711

REACTIONS (7)
  - DIARRHOEA [None]
  - DIZZINESS [None]
  - HEADACHE [None]
  - MALAISE [None]
  - MENORRHAGIA [None]
  - SYNCOPE [None]
  - VISUAL DISTURBANCE [None]
